FAERS Safety Report 8461222-6 (Version None)
Quarter: 2012Q2

REPORT INFORMATION
  Report Type: 
  Country: None (occurrence: None)
  Receive Date: 20120323
  Receipt Date: 20111208
  Transmission Date: 20120825
  Serious: Yes (Death)
  Sender: FDA-Public Use
  Company Number: 163-21880-11102495

PATIENT
  Age: 89 Year
  Sex: Female

DRUGS (4)
  1. REVLIMID [Suspect]
     Indication: 5Q MINUS SYNDROME
     Dosage: 10 MG, 1 IN 1 D, PO, 10 MG, DAILY X 12 DAYS, PO, 10 MG, MON, WED, FRIDAY, PO
     Route: 048
     Dates: start: 20100302, end: 20100101
  2. REVLIMID [Suspect]
     Indication: 5Q MINUS SYNDROME
     Dosage: 10 MG, 1 IN 1 D, PO, 10 MG, DAILY X 12 DAYS, PO, 10 MG, MON, WED, FRIDAY, PO
     Route: 048
     Dates: end: 20111019
  3. REVLIMID [Suspect]
     Indication: 5Q MINUS SYNDROME
     Dosage: 10 MG, 1 IN 1 D, PO, 10 MG, DAILY X 12 DAYS, PO, 10 MG, MON, WED, FRIDAY, PO
     Route: 048
     Dates: start: 20101122
  4. COUMADIN [Concomitant]

REACTIONS (1)
  - CARDIAC FAILURE CONGESTIVE [None]
